FAERS Safety Report 20394391 (Version 1)
Quarter: 2022Q1

REPORT INFORMATION
  Report Type: Spontaneous
  Country: GB (occurrence: GB)
  Receive Date: 20220129
  Receipt Date: 20220129
  Transmission Date: 20220423
  Serious: Yes (Hospitalization)
  Sender: FDA-Public Use
  Company Number: GB-drreddys-LIT/UKI/22/0146272

PATIENT
  Age: 49 Year
  Sex: Female

DRUGS (2)
  1. PREGABALIN [Suspect]
     Active Substance: PREGABALIN
     Indication: Anxiety
     Dosage: INCREASED UP TO 600MG DAILY
  2. PREGABALIN [Suspect]
     Active Substance: PREGABALIN
     Indication: Pain

REACTIONS (3)
  - Withdrawal syndrome [Recovering/Resolving]
  - Drug dependence [Unknown]
  - Therapy cessation [Unknown]
